FAERS Safety Report 23034578 (Version 1)
Quarter: 2023Q4

REPORT INFORMATION
  Report Type: Spontaneous
  Country: US (occurrence: None)
  Receive Date: 20231005
  Receipt Date: 20231005
  Transmission Date: 20240110
  Serious: Yes (Hospitalization)
  Sender: FDA-Public Use
  Company Number: None

PATIENT
  Sex: Female

DRUGS (3)
  1. PIQRAY [Suspect]
     Active Substance: ALPELISIB
     Indication: Breast cancer
     Dosage: OTHER STRENGTH : 2 X 150 MG;?FREQUENCY : DAILY;?
     Route: 048
     Dates: start: 20230920
  2. XGEVA [Concomitant]
     Active Substance: DENOSUMAB
  3. FULVESTRANT [Concomitant]
     Active Substance: FULVESTRANT

REACTIONS (4)
  - Dehydration [None]
  - Rash [None]
  - Blood glucose increased [None]
  - Blood pressure increased [None]
